FAERS Safety Report 15734636 (Version 5)
Quarter: 2019Q1

REPORT INFORMATION
  Report Type: Spontaneous
  Country: FR (occurrence: FR)
  Receive Date: 20181218
  Receipt Date: 20190131
  Transmission Date: 20190417
  Serious: Yes (Hospitalization)
  Sender: FDA-Public Use
  Company Number: FR-PFIZER INC-2018518279

PATIENT
  Age: 30 Year
  Sex: Female
  Weight: 41 kg

DRUGS (3)
  1. PARACETAMOL [Suspect]
     Active Substance: ACETAMINOPHEN
     Indication: TOXICITY TO VARIOUS AGENTS
     Dosage: 6 DF, SINGLE (ONCE/SINGLE ADMINISTRATION)
     Route: 048
     Dates: start: 20171106, end: 20171106
  2. XANAX [Suspect]
     Active Substance: ALPRAZOLAM
     Indication: TOXICITY TO VARIOUS AGENTS
     Dosage: UNK
     Route: 048
     Dates: start: 20171106, end: 20171106
  3. ATENOLOL. [Suspect]
     Active Substance: ATENOLOL
     Indication: TOXICITY TO VARIOUS AGENTS
     Dosage: 17 DF, SINGLE (ONCE/SINGLE ADMINISTRATION)
     Route: 048
     Dates: start: 20171106, end: 20171106

REACTIONS (5)
  - Suicide attempt [Recovered/Resolved]
  - Somnolence [Recovered/Resolved]
  - Toxicity to various agents [Recovered/Resolved]
  - Intentional overdose [Recovered/Resolved]
  - Hypotension [Recovered/Resolved]

NARRATIVE: CASE EVENT DATE: 20171106
